FAERS Safety Report 5364497-5 (Version None)
Quarter: 2007Q2

REPORT INFORMATION
  Report Type: 
  Country: None (occurrence: None)
  Receive Date: 20070530
  Receipt Date: 20070116
  Transmission Date: 20071010
  Serious: No
  Sender: FDA-Public Use
  Company Number: 2007PV028540

PATIENT
  Age: 72 Year
  Sex: Female
  Weight: 83.4619 kg

DRUGS (13)
  1. BYETTA [Suspect]
     Indication: DIABETES MELLITUS NON-INSULIN-DEPENDENT
     Dosage: 5 MCG;BID;SC
     Route: 058
     Dates: end: 20061201
  2. BYETTA [Suspect]
     Indication: DIABETES MELLITUS NON-INSULIN-DEPENDENT
     Dosage: 5 MCG;BID;SC
     Route: 058
     Dates: end: 20061201
  3. BYETTA [Suspect]
     Indication: DIABETES MELLITUS NON-INSULIN-DEPENDENT
     Dosage: 5 MCG;BID;SC
     Route: 058
     Dates: start: 20061223
  4. DIABANESE [Concomitant]
  5. NIFEDIPINE [Concomitant]
  6. PROCTRIN [Concomitant]
  7. PRAVACHOL [Concomitant]
  8. CLARITIN [Concomitant]
  9. DIOVAN [Concomitant]
  10. LASIX [Concomitant]
  11. AVANDIA [Concomitant]
  12. EMERIL [Concomitant]
  13. NIFEDICAL [Concomitant]

REACTIONS (1)
  - WEIGHT DECREASED [None]
